FAERS Safety Report 9994777 (Version 1)
Quarter: 2014Q1

REPORT INFORMATION
  Report Type: Spontaneous
  Country: US (occurrence: None)
  Receive Date: 20140307
  Receipt Date: 20140307
  Transmission Date: 20141002
  Serious: No
  Sender: FDA-Public Use
  Company Number: None

PATIENT
  Age: 70 Year
  Sex: Female

DRUGS (11)
  1. DULOXETINE [Suspect]
     Indication: MOOD DISORDER DUE TO A GENERAL MEDICAL CONDITION
     Dates: start: 20131229
  2. PROVIGIL MODAFINIL [Concomitant]
  3. ZESTRIL LISINOPRIL [Concomitant]
  4. LEVOTHRYOXINE [Concomitant]
  5. PREVACID (LANSOPRAZOLE) [Concomitant]
  6. FERROUS SULFLATE [Concomitant]
  7. PLAVIX CLOPIDOGREL [Concomitant]
  8. CYMBALTA [Concomitant]
  9. VITAMIN D3 [Concomitant]
  10. TUMS [Concomitant]
  11. B COMPLEX VITAMIN [Concomitant]

REACTIONS (2)
  - Sensory loss [None]
  - Activities of daily living impaired [None]
